FAERS Safety Report 4599236-9 (Version None)
Quarter: 2005Q1

REPORT INFORMATION
  Report Type: 
  Country: None (occurrence: None)
  Receive Date: 20050302
  Receipt Date: 20050302
  Transmission Date: 20050727
  Serious: Yes (Hospitalization)
  Sender: FDA-Public Use
  Company Number: None

PATIENT
  Age: 71 Year
  Sex: Male

DRUGS (11)
  1. DOXORUBICIN HCL [Suspect]
     Indication: PROSTATE CANCER
     Dosage: 10 MG /M2 IV Q WK X 3 Q 4 WEEKS
     Route: 042
     Dates: start: 20040406
  2. TAXOTERE [Suspect]
     Indication: PROSTATE CANCER
     Dosage: 35 MG /M2 IV Q WK X 3 Q 4 WEEKS
     Route: 042
     Dates: start: 20040416
  3. GLYBURIDE [Concomitant]
  4. ZOLOFT [Concomitant]
  5. PROSCAR [Concomitant]
  6. PREVACID [Concomitant]
  7. DECADRON [Concomitant]
  8. OXYCODONE HCL [Concomitant]
  9. ZOCOR [Concomitant]
  10. LASIX [Concomitant]
  11. COMPAZINE [Concomitant]

REACTIONS (4)
  - BLOOD CREATININE INCREASED [None]
  - BLOOD GLUCOSE DECREASED [None]
  - MECHANICAL COMPLICATION OF IMPLANT [None]
  - MENTAL STATUS CHANGES [None]
